FAERS Safety Report 10360984 (Version 7)
Quarter: 2015Q2

REPORT INFORMATION
  Report Type: Report from Study
  Country: JP (occurrence: JP)
  Receive Date: 20140804
  Receipt Date: 20150608
  Transmission Date: 20150821
  Serious: Yes (Death, Life-Threatening, Other)
  Sender: FDA-Public Use
  Company Number: JP-JNJFOC-20140719132

PATIENT
  Age: 71 Year
  Sex: Male
  Weight: 68 kg

DRUGS (10)
  1. SOVRIAD [Suspect]
     Active Substance: SIMEPREVIR
     Indication: CHRONIC HEPATITIS C
     Route: 048
     Dates: start: 20140123, end: 20140417
  2. ALLELOCK [Concomitant]
     Active Substance: OLOPATADINE HYDROCHLORIDE
     Route: 048
     Dates: start: 20140220, end: 20140319
  3. PEGASYS [Suspect]
     Active Substance: PEGINTERFERON ALFA-2A
     Indication: CHRONIC HEPATITIS C
     Route: 058
     Dates: start: 20140123, end: 20140508
  4. COPEGUS [Suspect]
     Active Substance: RIBAVIRIN
     Indication: CHRONIC HEPATITIS C
     Route: 048
     Dates: start: 20140123, end: 20150508
  5. EPADEL S [Concomitant]
     Active Substance: ETHYL ICOSAPENTATE\ICOSAPENT
     Route: 048
     Dates: start: 20140123, end: 20140508
  6. PURSENNID [Concomitant]
     Active Substance: SENNOSIDES A AND B
     Route: 048
  7. DEXALTIN [Concomitant]
     Active Substance: DEXAMETHASONE
     Route: 049
  8. ALLEGRA [Concomitant]
     Active Substance: FEXOFENADINE HYDROCHLORIDE
     Route: 049
     Dates: start: 20140220, end: 20140508
  9. ANTEBATE [Concomitant]
     Active Substance: BETAMETHASONE DIPROPIONATE
     Route: 061
     Dates: start: 20140327, end: 20140508
  10. HEPARINOID [Concomitant]
     Active Substance: CHONDROITIN SULFATE (BOVINE)
     Route: 061
     Dates: start: 20140327, end: 20140508

REACTIONS (10)
  - Brain stem infarction [Fatal]
  - Platelet count decreased [Recovering/Resolving]
  - Cardiac failure [Fatal]
  - Disseminated intravascular coagulation [Not Recovered/Not Resolved]
  - Dry skin [Recovering/Resolving]
  - Depressed level of consciousness [Unknown]
  - Respiratory failure [Fatal]
  - Infective spondylitis [Not Recovered/Not Resolved]
  - Atrial fibrillation [Unknown]
  - Rash pruritic [Not Recovered/Not Resolved]

NARRATIVE: CASE EVENT DATE: 2014
